FAERS Safety Report 5803763-3 (Version None)
Quarter: 2008Q3

REPORT INFORMATION
  Report Type: 
  Country: None (occurrence: None)
  Receive Date: 20080707
  Receipt Date: 20080624
  Transmission Date: 20090109
  Serious: Yes (Hospitalization, Other)
  Sender: FDA-Public Use
  Company Number: 08P-028-0459756-00

PATIENT
  Age: 7 Month
  Sex: Female

DRUGS (6)
  1. SYNAGIS [Suspect]
     Indication: ANTIVIRAL PROPHYLAXIS
     Dosage: (30 MG, ONCE) INTRAMUSCULAR; (37 MG, ONCE) INTRAMUSCULAR; INTRAMUSCULAR
     Route: 030
     Dates: start: 20080220, end: 20080220
  2. SYNAGIS [Suspect]
     Indication: ANTIVIRAL PROPHYLAXIS
     Dosage: (30 MG, ONCE) INTRAMUSCULAR; (37 MG, ONCE) INTRAMUSCULAR; INTRAMUSCULAR
     Route: 030
     Dates: start: 20080412, end: 20080412
  3. FUROSEMIDE [Concomitant]
  4. ALDACTAZIDE-A [Concomitant]
  5. FERROUS SULFATE TAB [Concomitant]
  6. HALIBORANGE [Concomitant]

REACTIONS (4)
  - CARDIAC FAILURE CONGESTIVE [None]
  - CORNEAL OPACITY [None]
  - PULMONARY OEDEMA [None]
  - RESPIRATORY SYNCYTIAL VIRUS INFECTION [None]
